FAERS Safety Report 13718776 (Version 2)
Quarter: 2017Q4

REPORT INFORMATION
  Report Type: Report from Study
  Country: US (occurrence: US)
  Receive Date: 20170705
  Receipt Date: 20171207
  Transmission Date: 20180320
  Serious: Yes (Hospitalization, Other)
  Sender: FDA-Public Use
  Company Number: US-ACTELION-A-NJ2016-131547

PATIENT
  Age: 78 Year
  Sex: Female
  Weight: 73.92 kg

DRUGS (5)
  1. ADEMPAS [Concomitant]
     Active Substance: RIOCIGUAT
     Dosage: UNK UNK, QD
     Dates: end: 20160218
  2. XARELTO [Concomitant]
     Active Substance: RIVAROXABAN
  3. OPSUMIT [Suspect]
     Active Substance: MACITENTAN
     Indication: PULMONARY HYPERTENSION
     Dosage: 10 MG, QD
     Route: 048
     Dates: start: 20160204
  4. AMLODIPINE [Concomitant]
     Active Substance: AMLODIPINE BESYLATE
  5. GABAPENTIN. [Suspect]
     Active Substance: GABAPENTIN
     Indication: PRODUCT USED FOR UNKNOWN INDICATION
     Route: 065

REACTIONS (10)
  - Pulmonary arterial hypertension [Unknown]
  - Pulmonary thrombosis [Unknown]
  - Back pain [Unknown]
  - Oedema [Unknown]
  - Thrombosis [Unknown]
  - Pain in extremity [Unknown]
  - Oedema peripheral [Unknown]
  - Hypotension [Unknown]
  - Feeling abnormal [Unknown]
  - Dyspnoea exertional [Unknown]

NARRATIVE: CASE EVENT DATE: 20160218
